FAERS Safety Report 17946633 (Version 3)
Quarter: 2020Q3

REPORT INFORMATION
  Report Type: Spontaneous
  Country: TR (occurrence: TR)
  Receive Date: 20200625
  Receipt Date: 20200702
  Transmission Date: 20201103
  Serious: Yes (Death, Hospitalization, Other)
  Sender: FDA-Public Use
  Company Number: TR-PFIZER INC-2020240614

PATIENT
  Age: 30 Year
  Sex: Male

DRUGS (2)
  1. IDARUBICIN HCL [Suspect]
     Active Substance: IDARUBICIN HYDROCHLORIDE
     Indication: ACUTE PROMYELOCYTIC LEUKAEMIA
     Dosage: UNK
  2. CYTARABINE. [Suspect]
     Active Substance: CYTARABINE
     Indication: ACUTE PROMYELOCYTIC LEUKAEMIA
     Dosage: UNK

REACTIONS (5)
  - Death [Fatal]
  - Cerebral haemorrhage [Unknown]
  - Amnesia [Unknown]
  - Loss of consciousness [Unknown]
  - Disorientation [Unknown]
